FAERS Safety Report 7743085-7 (Version None)
Quarter: 2011Q3

REPORT INFORMATION
  Report Type: 
  Country: None (occurrence: None)
  Receive Date: 20110912
  Receipt Date: 20110829
  Transmission Date: 20111222
  Serious: Yes (Hospitalization)
  Sender: FDA-Public Use
  Company Number: US-ELI_LILLY_AND_COMPANY-US201107003131

PATIENT
  Sex: Female
  Weight: 58.05 kg

DRUGS (11)
  1. PAROXETINE HCL [Concomitant]
     Dosage: 20 MG, BID
  2. VITAMIN D [Concomitant]
     Dosage: 5000 UNK, UNK
  3. FORTEO [Suspect]
     Dosage: 20 UG, QD
  4. DONEPEZIL HCL [Concomitant]
     Dosage: 10 MG, QD
  5. CLONAZEPAM [Concomitant]
     Dosage: 2 MG, UNK
  6. FORTEO [Suspect]
     Indication: OSTEOPOROSIS
     Dosage: 20 UG, QD
     Dates: start: 20101001
  7. TOPIRAMATE [Concomitant]
     Dosage: 50 MG, UNK
  8. PANTOPRAZOLE [Concomitant]
     Dosage: 40 MG, QD
  9. CALCIUM CARBONATE [Concomitant]
     Dosage: 1000 MG, UNK
  10. FORTEO [Suspect]
     Dosage: 20 UG, QD
  11. VITAMIN D [Concomitant]
     Dosage: 10000 UNK, UNK

REACTIONS (7)
  - DYSPHAGIA [None]
  - HEART RATE DECREASED [None]
  - FALL [None]
  - ASTHENIA [None]
  - TREMOR [None]
  - VISUAL ACUITY REDUCED [None]
  - VITAMIN D DECREASED [None]
